FAERS Safety Report 15076424 (Version 1)
Quarter: 2018Q2

REPORT INFORMATION
  Report Type: Spontaneous
  Country: NO (occurrence: NO)
  Receive Date: 20180627
  Receipt Date: 20180627
  Transmission Date: 20180711
  Serious: Yes (Other)
  Sender: FDA-Public Use
  Company Number: NO-009507513-1806NOR007995

PATIENT
  Age: 48 Year
  Sex: Female

DRUGS (3)
  1. ESMERON [Suspect]
     Active Substance: ROCURONIUM BROMIDE
     Dosage: 40 MG, UNK
     Route: 042
     Dates: start: 20180313, end: 20180313
  2. ULTIVA [Concomitant]
     Active Substance: REMIFENTANIL HYDROCHLORIDE
     Indication: GENERAL ANAESTHESIA
     Dosage: 0.5 UG/KG/MIN
     Route: 042
     Dates: start: 20180313, end: 20180313
  3. PROPOFOL. [Concomitant]
     Active Substance: PROPOFOL
     Indication: GENERAL ANAESTHESIA
     Dosage: 2 MG/KG INDUCTION, THEN 6 MG/KG/H.
     Route: 042
     Dates: start: 20180313, end: 20180313

REACTIONS (4)
  - Erythema [Recovered/Resolved]
  - Blood pressure decreased [Recovered/Resolved]
  - Anaphylactic reaction [Recovered/Resolved]
  - Bronchial obstruction [Recovered/Resolved]

NARRATIVE: CASE EVENT DATE: 20180313
